FAERS Safety Report 15533233 (Version 5)
Quarter: 2019Q3

REPORT INFORMATION
  Report Type: Spontaneous
  Country: US (occurrence: US)
  Receive Date: 20181019
  Receipt Date: 20190830
  Transmission Date: 20191004
  Serious: No
  Sender: FDA-Public Use
  Company Number: US-SA-2018SA286493

PATIENT
  Age: 9 Year
  Sex: Female
  Weight: 43.9 kg

DRUGS (1)
  1. FABRAZYME [Suspect]
     Active Substance: AGALSIDASE BETA
     Indication: FABRY^S DISEASE
     Dosage: 50 MG, QOW
     Route: 041
     Dates: start: 20180924

REACTIONS (7)
  - Feeling of body temperature change [Recovered/Resolved]
  - Infusion related reaction [Not Recovered/Not Resolved]
  - Pyrexia [Recovered/Resolved]
  - Product storage error [Unknown]
  - Poor quality sleep [Not Recovered/Not Resolved]
  - Pain [Unknown]
  - Flushing [Recovered/Resolved]

NARRATIVE: CASE EVENT DATE: 20181010
